FAERS Safety Report 7599671-0 (Version None)
Quarter: 2011Q3

REPORT INFORMATION
  Report Type: 
  Country: None (occurrence: None)
  Receive Date: 20110711
  Receipt Date: 20110628
  Transmission Date: 20111222
  Serious: Yes (Death)
  Sender: FDA-Public Use
  Company Number: SK-ELI_LILLY_AND_COMPANY-SK201106008649

PATIENT
  Age: 27 Year
  Sex: Male

DRUGS (5)
  1. ZOLPIDEM [Concomitant]
     Dosage: UNK, UNKNOWN
     Route: 065
  2. LEVOPROMAZIN [Concomitant]
     Dosage: UNK, UNKNOWN
     Route: 065
  3. ALPRAZOLAM [Concomitant]
  4. OLANZAPINE [Suspect]
     Indication: SCHIZOPHRENIA
     Dosage: 405 MG, 4/W
     Route: 030
     Dates: start: 20101201
  5. TRAZODONE HCL [Concomitant]
     Dosage: UNK, UNKNOWN
     Route: 065

REACTIONS (1)
  - COMPLETED SUICIDE [None]
